FAERS Safety Report 11659733 (Version 1)
Quarter: 2015Q4

REPORT INFORMATION
  Report Type: Spontaneous
  Country: US (occurrence: None)
  Receive Date: 20151023
  Receipt Date: 20151023
  Transmission Date: 20160304
  Serious: Yes (Other)
  Sender: FDA-Public Use
  Company Number: None

PATIENT
  Age: 74 Year
  Sex: Female
  Weight: 66.23 kg

DRUGS (9)
  1. CENTRUM SILVER [Concomitant]
     Active Substance: MINERALS\VITAMINS
  2. ASPIRIN. [Concomitant]
     Active Substance: ASPIRIN
  3. COQ10 [Concomitant]
     Active Substance: UBIDECARENONE
  4. ZYRTEC [Concomitant]
     Active Substance: CETIRIZINE HYDROCHLORIDE
  5. CHLOSTOFF-PLUSS [Concomitant]
  6. SPIRONOLACTONE. [Concomitant]
     Active Substance: SPIRONOLACTONE
  7. SUSTENEX PROBIOTIC [Concomitant]
  8. CALCIUM+D [Concomitant]
  9. PROLIA [Suspect]
     Active Substance: DENOSUMAB
     Indication: OSTEOPOROSIS
     Dosage: 2X A YEAR

REACTIONS (4)
  - Musculoskeletal pain [None]
  - Coccydynia [None]
  - Balance disorder [None]
  - Arthralgia [None]

NARRATIVE: CASE EVENT DATE: 20151020
